FAERS Safety Report 6276490-9 (Version None)
Quarter: 2009Q3

REPORT INFORMATION
  Report Type: 
  Country: None (occurrence: None)
  Receive Date: 20090722
  Receipt Date: 20090713
  Transmission Date: 20100115
  Serious: Yes (Hospitalization)
  Sender: FDA-Public Use
  Company Number: US-ELI_LILLY_AND_COMPANY-US200906005274

PATIENT
  Age: 55 Year
  Sex: Female

DRUGS (21)
  1. FORTEO [Suspect]
     Dosage: 20 UG, DAILY (1/D)
     Route: 058
     Dates: start: 20090401
  2. CEFTIN [Concomitant]
     Dosage: 250 MG, 2/D
     Route: 048
     Dates: end: 20090425
  3. COLACE [Concomitant]
     Dosage: 100 MG, 2/D
     Route: 048
  4. ADVAIR HFA [Concomitant]
     Dosage: 500/50 TWO PUFFS
  5. GUAIFENESIN [Concomitant]
     Dosage: 1200 MG, 2/D
     Route: 048
  6. NOVOLOG MIX 70/30 [Concomitant]
     Dosage: 22 U, EACH EVENING
     Route: 058
  7. NOVOLOG MIX 70/30 [Concomitant]
     Dosage: 38 U, EACH MORNING
     Route: 058
  8. XOPENEX [Concomitant]
     Dosage: 1.25/3 ML
  9. SYNTHROID [Concomitant]
     Dosage: 88 UG, DAILY (1/D)
     Route: 048
  10. ZESTRIL [Concomitant]
     Dosage: 20 MG, DAILY (1/D)
     Route: 048
  11. SINGULAIR [Concomitant]
     Dosage: 10 MG, EACH EVENING
     Route: 048
  12. OXYCONTIN [Concomitant]
     Dosage: 20 MG, EVERY 12 HOURS
     Route: 048
  13. PROTONIX [Concomitant]
     Dosage: 40 MG, UNK
     Route: 048
  14. MIRALAX [Concomitant]
     Dosage: 17 G, DAILY (1/D)
     Route: 048
  15. DELTASONE [Concomitant]
     Dosage: 20 G, DAILY (1/D)
     Route: 048
  16. ZOCOR [Concomitant]
     Dosage: 40 MG, EACH EVENING
     Route: 048
  17. BACTRIM DS [Concomitant]
     Dosage: ONE DAILY (1/D)
     Route: 048
  18. COUMADIN [Concomitant]
     Indication: INTERNATIONAL NORMALISED RATIO
  19. XANAX [Concomitant]
     Indication: ANXIETY
     Dosage: 0.5 MG, EVERY 8 HOURS AS NEEDED
     Route: 048
  20. AMBIEN [Concomitant]
     Indication: SLEEP DISORDER
     Dosage: 5 MG, NIGHTLY AS NEEDED
  21. PERCOCET [Concomitant]
     Indication: PAIN
     Dosage: 10/325, EVERY 6 HRS AS NEEDED
     Route: 048

REACTIONS (2)
  - MALAISE [None]
  - PNEUMONIA [None]
